FAERS Safety Report 9963768 (Version 1)
Quarter: 2014Q1

REPORT INFORMATION
  Report Type: Report from Study
  Country: US (occurrence: US)
  Receive Date: 20140305
  Receipt Date: 20140305
  Transmission Date: 20141002
  Serious: No
  Sender: FDA-Public Use
  Company Number: US-ABBVIE-13P-163-1118881-00

PATIENT
  Sex: Female
  Weight: 44.49 kg

DRUGS (10)
  1. HUMIRA [Suspect]
     Indication: RHEUMATOID ARTHRITIS
     Dates: start: 2011
  2. LYRICA [Concomitant]
     Indication: PAIN
  3. AMLODIPINE [Concomitant]
     Indication: BLOOD PRESSURE
  4. ASPIRIN [Concomitant]
     Indication: DEEP VEIN THROMBOSIS
  5. EFFEXOR [Concomitant]
     Indication: DEPRESSION
  6. LORATADINE [Concomitant]
     Indication: HYPERSENSITIVITY
  7. OSTEO BI-FLEX [Concomitant]
     Indication: ARTHROPATHY
  8. MULTIVITAMIN [Concomitant]
     Indication: PRODUCT USED FOR UNKNOWN INDICATION
  9. TRAMADOL [Concomitant]
     Indication: PAIN
  10. CALCIUM [Concomitant]
     Indication: BONE DISORDER

REACTIONS (2)
  - Drug ineffective [Unknown]
  - Hepatic enzyme increased [Unknown]
